FAERS Safety Report 6500489-8 (Version None)
Quarter: 2009Q4

REPORT INFORMATION
  Report Type: 
  Country: None (occurrence: None)
  Receive Date: 20091216
  Receipt Date: 20090123
  Transmission Date: 20100525
  Serious: Yes (Hospitalization, Other)
  Sender: FDA-Public Use
  Company Number: PHHY2008JP31731

PATIENT
  Sex: Male
  Weight: 34 kg

DRUGS (18)
  1. COMTAN [Suspect]
     Indication: DRUG EFFECT DECREASED
     Dosage: 100 MG/TIME
     Route: 048
     Dates: start: 20070101
  2. COMTAN [Suspect]
     Indication: DYSKINESIA
     Dosage: 200 MG/TIME
     Route: 048
  3. COMTAN [Suspect]
     Dosage: 700 MG DAILY
     Route: 048
     Dates: start: 20070703, end: 20080324
  4. COMTAN [Suspect]
     Dosage: 700MG DAILY (EVERY 2 HOURS)
     Route: 048
     Dates: start: 20080325, end: 20080418
  5. COMTAN [Suspect]
     Dosage: 700MG DIVIDED INTO 7 DOSES
     Route: 048
     Dates: start: 20080419
  6. COMTAN [Suspect]
     Dosage: 800 MG DAILY
     Route: 048
     Dates: start: 20080509, end: 20080520
  7. PARLODEL [Suspect]
     Indication: PARKINSON'S DISEASE
     Dosage: 5.0MG
     Route: 048
  8. LEVODOPA [Suspect]
     Dosage: 100 MG
     Dates: start: 20070101
  9. LEVODOPA [Suspect]
     Dosage: 700 MG
     Dates: start: 20080419
  10. LEVODOPA [Suspect]
     Dosage: UNK
     Route: 045
     Dates: start: 20080701
  11. LEVODOPA [Suspect]
     Dosage: 300-350 MG
  12. MENESIT [Suspect]
     Indication: PARKINSON'S DISEASE
     Dosage: 700MG
     Route: 048
  13. MENESIT [Suspect]
     Dosage: UNK
     Dates: start: 20080701
  14. PRAMIPEXOLE DIHYDROCHLORIDE [Suspect]
     Indication: PARKINSON'S DISEASE
     Dosage: 0.25
     Route: 048
  15. SELBEX [Concomitant]
     Indication: GASTRITIS
     Dosage: 150MG
     Route: 048
  16. DEPAKENE [Concomitant]
     Dosage: 800MG
     Route: 048
  17. SEROQUEL [Concomitant]
     Indication: HALLUCINATION
     Dosage: 12.5MG
     Route: 048
  18. EURODIN [Concomitant]
     Indication: ANXIETY
     Dosage: 0.5MG
     Route: 048

REACTIONS (5)
  - DRUG EFFECT DECREASED [None]
  - DRUG LEVEL INCREASED [None]
  - DYSKINESIA [None]
  - HYPERHIDROSIS [None]
  - VOMITING [None]
